FAERS Safety Report 9911486 (Version 2)
Quarter: 2014Q1

REPORT INFORMATION
  Report Type: Spontaneous
  Country: BR (occurrence: BR)
  Receive Date: 20140219
  Receipt Date: 20140322
  Transmission Date: 20141002
  Serious: Yes (Hospitalization, Other)
  Sender: FDA-Public Use
  Company Number: PHHY2014BR018743

PATIENT
  Age: 69 Year
  Sex: Female
  Weight: 90 kg

DRUGS (3)
  1. ONBREZ [Suspect]
     Indication: CHRONIC OBSTRUCTIVE PULMONARY DISEASE
     Dosage: 300 UG, DAILY
     Route: 055
     Dates: start: 201306
  2. SPIRIVA [Concomitant]
     Indication: CHRONIC OBSTRUCTIVE PULMONARY DISEASE
     Dosage: 2 DF, DAILY
     Route: 055
     Dates: start: 201306
  3. OXIMAX [Concomitant]
     Indication: CHRONIC OBSTRUCTIVE PULMONARY DISEASE
     Dosage: 1 DF, DAILY
     Route: 048
     Dates: start: 201306

REACTIONS (5)
  - General physical health deterioration [Not Recovered/Not Resolved]
  - Respiratory arrest [Recovered/Resolved]
  - Coma [Recovered/Resolved]
  - Myoclonic epilepsy [Not Recovered/Not Resolved]
  - Hemiplegia [Recovered/Resolved with Sequelae]
